FAERS Safety Report 8599349-0 (Version None)
Quarter: 2012Q3

REPORT INFORMATION
  Report Type: 
  Country: None (occurrence: None)
  Receive Date: 20120816
  Receipt Date: 20120808
  Transmission Date: 20120928
  Serious: Yes (Disabling, Other)
  Sender: FDA-Public Use
  Company Number: CA-ROCHE-1079624

PATIENT
  Sex: Female

DRUGS (2)
  1. OMALIZUMAB [Suspect]
     Indication: ASTHMA
     Route: 058
     Dates: start: 20081208
  2. SYMBICORT [Concomitant]
     Dates: start: 20120807

REACTIONS (6)
  - ARTHRALGIA [None]
  - PULMONARY FUNCTION TEST ABNORMAL [None]
  - JOINT SWELLING [None]
  - HEADACHE [None]
  - WALKING AID USER [None]
  - ERYTHEMA [None]
